FAERS Safety Report 9848937 (Version 1)
Quarter: 2014Q1

REPORT INFORMATION
  Report Type: Spontaneous
  Country: US (occurrence: None)
  Receive Date: 20140124
  Receipt Date: 20140124
  Transmission Date: 20141002
  Serious: Yes (Other)
  Sender: FDA-Public Use
  Company Number: None

PATIENT
  Age: 64 Year
  Sex: Male
  Weight: 754.5 kg

DRUGS (4)
  1. TEMOZOLOMIDE [Suspect]
     Indication: GLIOBLASTOMA
     Dosage: 5 DAYS/MONTH
     Route: 048
     Dates: start: 201211, end: 201303
  2. ONDANSETRON [Concomitant]
  3. TEMOZOLOMIDE [Concomitant]
  4. DIAZEPAM [Concomitant]

REACTIONS (1)
  - Retinal detachment [None]
